FAERS Safety Report 9247748 (Version 1)
Quarter: 2013Q2

REPORT INFORMATION
  Report Type: Spontaneous
  Country: US (occurrence: None)
  Receive Date: 20130419
  Receipt Date: 20130419
  Transmission Date: 20140414
  Serious: No
  Sender: FDA-Public Use
  Company Number: None

PATIENT
  Age: 30 Year
  Sex: Female
  Weight: 99.34 kg

DRUGS (2)
  1. MAXALT-MLT [Suspect]
     Dosage: 1 PO AS DIRECTED PRN #12
     Route: 048
  2. TRAMADOL [Suspect]
     Dosage: 1 PO BID #60
     Route: 048

REACTIONS (1)
  - Drug ineffective [None]
